FAERS Safety Report 17801954 (Version 1)
Quarter: 2020Q2

REPORT INFORMATION
  Report Type: Spontaneous
  Country: US (occurrence: US)
  Receive Date: 20200519
  Receipt Date: 20200519
  Transmission Date: 20200714
  Serious: No
  Sender: FDA-Public Use
  Company Number: US-DRREDDYS-USA/USA/20/0122881

PATIENT
  Age: 57 Year
  Sex: Female
  Weight: 112.5 kg

DRUGS (2)
  1. FEXOFENADINE HCL 60 MG AND PSEUDOEPHEDRINE HCL ER 120 MG [Suspect]
     Active Substance: FEXOFENADINE HYDROCHLORIDE\PSEUDOEPHEDRINE HYDROCHLORIDE
     Indication: HYPERSENSITIVITY
     Dosage: 60/120MG
     Route: 048
     Dates: start: 20200510, end: 20200511
  2. FISH OIL [Concomitant]
     Active Substance: FISH OIL
     Indication: PRODUCT USED FOR UNKNOWN INDICATION
     Route: 065

REACTIONS (5)
  - Dyspepsia [Unknown]
  - Chest discomfort [Unknown]
  - Product administration error [Unknown]
  - Anxiety [Unknown]
  - Insomnia [Unknown]

NARRATIVE: CASE EVENT DATE: 20200510
